FAERS Safety Report 16883986 (Version 1)
Quarter: 2019Q4

REPORT INFORMATION
  Report Type: Report from Study
  Country: US (occurrence: US)
  Receive Date: 20191004
  Receipt Date: 20191004
  Transmission Date: 20200122
  Serious: Yes (Other)
  Sender: FDA-Public Use
  Company Number: US-ROCHE-2349799

PATIENT
  Age: 73 Year
  Sex: Male
  Weight: 83.99 kg

DRUGS (1)
  1. OCREVUS [Suspect]
     Active Substance: OCRELIZUMAB
     Indication: PRIMARY PROGRESSIVE MULTIPLE SCLEROSIS
     Dosage: ONCE EVERY 6 MONTHS
     Route: 042
     Dates: start: 20190606

REACTIONS (5)
  - Hypertension [Recovered/Resolved]
  - Cellulitis [Recovered/Resolved]
  - Neoplasm malignant [Unknown]
  - Ulcer [Unknown]
  - Visual impairment [Unknown]

NARRATIVE: CASE EVENT DATE: 20190621
